FAERS Safety Report 5257169-9 (Version None)
Quarter: 2007Q1

REPORT INFORMATION
  Report Type: 
  Country: None (occurrence: None)
  Receive Date: 20061220
  Receipt Date: 20060815
  Transmission Date: 20070707
  Serious: No
  Sender: FDA-Public Use
  Company Number: 2006RL000296

PATIENT
  Age: 74 Year
  Sex: Female
  Weight: 67.1324 kg

DRUGS (1)
  1. OMACOR [Suspect]
     Indication: HYPERTRIGLYCERIDAEMIA
     Dosage: 2 GM; QD; PO
     Route: 048
     Dates: start: 20060801, end: 20060801

REACTIONS (2)
  - HOT FLUSH [None]
  - HYPERHIDROSIS [None]
